FAERS Safety Report 11787531 (Version 3)
Quarter: 2016Q2

REPORT INFORMATION
  Report Type: Report from Study
  Country: US (occurrence: US)
  Receive Date: 20151130
  Receipt Date: 20160526
  Transmission Date: 20160815
  Serious: Yes (Hospitalization, Other)
  Sender: FDA-Public Use
  Company Number: US-SA-2015SA181536

PATIENT
  Age: 51 Year
  Sex: Male

DRUGS (7)
  1. BACLOFEN. [Concomitant]
     Active Substance: BACLOFEN
  2. BUPROPION. [Concomitant]
     Active Substance: BUPROPION
  3. MYRBETRIQ [Concomitant]
     Active Substance: MIRABEGRON
  4. LEMTRADA [Suspect]
     Active Substance: ALEMTUZUMAB
     Indication: MULTIPLE SCLEROSIS
     Route: 041
     Dates: start: 20151005, end: 20151009
  5. ACYCLOVIR. [Concomitant]
     Active Substance: ACYCLOVIR
  6. SERTRALINE [Concomitant]
     Active Substance: SERTRALINE HYDROCHLORIDE
  7. AMPYRA [Concomitant]
     Active Substance: DALFAMPRIDINE

REACTIONS (10)
  - Infection [Not Recovered/Not Resolved]
  - Chills [Unknown]
  - Delirium [Unknown]
  - Confusional state [Not Recovered/Not Resolved]
  - Urinary tract infection [Recovered/Resolved]
  - Memory impairment [Not Recovered/Not Resolved]
  - Cystitis [Recovered/Resolved]
  - Tremor [Unknown]
  - Drug ineffective [Unknown]
  - Body temperature increased [Unknown]

NARRATIVE: CASE EVENT DATE: 2015
